FAERS Safety Report 7285841-8 (Version None)
Quarter: 2011Q1

REPORT INFORMATION
  Report Type: 
  Country: None (occurrence: None)
  Receive Date: 20110210
  Receipt Date: 20110131
  Transmission Date: 20110831
  Serious: Yes (Other)
  Sender: FDA-Public Use
  Company Number: FR-BRISTOL-MYERS SQUIBB COMPANY-15509599

PATIENT
  Age: 1 Day
  Sex: Male
  Weight: 3 kg

DRUGS (2)
  1. ROFERON-A [Suspect]
     Dosage: 1 DF=3MIU.
     Route: 064
     Dates: start: 20100713, end: 20110118
  2. SPRYCEL [Suspect]
     Route: 064
     Dates: start: 20100501, end: 20100620

REACTIONS (2)
  - PYELOCALIECTASIS [None]
  - MATERNAL DRUGS AFFECTING FOETUS [None]
